FAERS Safety Report 5579875-9 (Version None)
Quarter: 2008Q1

REPORT INFORMATION
  Report Type: 
  Country: None (occurrence: None)
  Receive Date: 20080102
  Receipt Date: 20071228
  Transmission Date: 20080703
  Serious: Yes (Death)
  Sender: FDA-Public Use
  Company Number: CH-MERCK-0712CHE00026

PATIENT
  Age: 52 Year
  Sex: Male
  Weight: 96 kg

DRUGS (6)
  1. JANUVIA [Suspect]
     Indication: TYPE 2 DIABETES MELLITUS
     Route: 048
     Dates: start: 20071126, end: 20071129
  2. METFORMIN [Suspect]
     Indication: TYPE 2 DIABETES MELLITUS
     Route: 048
     Dates: start: 20071126, end: 20071129
  3. BISOPROLOL FUMARATE [Concomitant]
     Indication: HYPERTENSION
     Route: 048
     Dates: start: 20010220, end: 20071129
  4. HYDROCHLOROTHIAZIDE AND IRBESARTAN [Concomitant]
     Indication: HYPERTENSION
     Route: 048
     Dates: start: 20010504, end: 20071129
  5. [COMPOSITION UNSPECIFIED] [Concomitant]
     Indication: TYPE 2 DIABETES MELLITUS
     Route: 065
     Dates: end: 20071125
  6. [COMPOSITION UNSPECIFIED] [Concomitant]
     Route: 065
     Dates: end: 20071125

REACTIONS (1)
  - DEATH [None]
